FAERS Safety Report 4426704-2 (Version None)
Quarter: 2004Q3

REPORT INFORMATION
  Report Type: 
  Country: None (occurrence: None)
  Receive Date: 20040811
  Receipt Date: 20040722
  Transmission Date: 20050211
  Serious: Yes (Death)
  Sender: FDA-Public Use
  Company Number: USA040773353

PATIENT
  Age: 73 Year
  Sex: Female

DRUGS (3)
  1. ZYPREXA [Suspect]
     Indication: BIPOLAR DISORDER
     Route: 048
  2. DEPAKOTE [Concomitant]
  3. TEGRETOL [Concomitant]

REACTIONS (2)
  - METASTASES TO CENTRAL NERVOUS SYSTEM [None]
  - WEIGHT INCREASED [None]
